FAERS Safety Report 8435382 (Version 3)
Quarter: 2014Q1

REPORT INFORMATION
  Report Type: Spontaneous
  Country: US (occurrence: US)
  Receive Date: 20120301
  Receipt Date: 20140124
  Transmission Date: 20141002
  Serious: Yes (Death)
  Sender: FDA-Public Use
  Company Number: US-GLAXOSMITHKLINE-A0932442A

PATIENT
  Age: 58 Year
  Sex: Male
  Weight: 132.7 kg

DRUGS (9)
  1. AVANDIA [Suspect]
     Indication: DIABETES MELLITUS
     Dosage: 4MG TWICE PER DAY
     Route: 048
     Dates: end: 20080715
  2. AMARYL [Concomitant]
  3. ZOCOR [Concomitant]
  4. NORVASC [Concomitant]
  5. PROCRIT [Concomitant]
  6. ZESTRIL [Concomitant]
  7. SYNTHROID [Concomitant]
  8. WELCHOL [Concomitant]
  9. LASIX [Concomitant]

REACTIONS (1)
  - Acute myocardial infarction [Fatal]
